FAERS Safety Report 23356140 (Version 1)
Quarter: 2024Q1

REPORT INFORMATION
  Report Type: Report from Study
  Country: US (occurrence: US)
  Receive Date: 20240102
  Receipt Date: 20240102
  Transmission Date: 20240409
  Serious: Yes (Hospitalization)
  Sender: FDA-Public Use
  Company Number: US-GILEAD-2023-0656906

PATIENT
  Age: 48 Year
  Sex: Male

DRUGS (39)
  1. AZTREONAM LYSINE [Suspect]
     Active Substance: AZTREONAM LYSINE
     Indication: Cystic fibrosis
     Dosage: 1 DOSAGE FORM, TID, INHALE 1 VIAL VIA NEBULIZER THREE TIMES DAILY FOR 28 DAYS
     Route: 055
     Dates: start: 20231220
  2. ACTIGALL [Concomitant]
     Active Substance: URSODIOL
  3. ALBUTEROL [Concomitant]
     Active Substance: ALBUTEROL
  4. AZITHROMYCIN [Concomitant]
     Active Substance: AZITHROMYCIN
  5. BACTRIM [Concomitant]
     Active Substance: SULFAMETHOXAZOLE\TRIMETHOPRIM
  6. CALCITRIOL [Concomitant]
     Active Substance: CALCITRIOL
  7. CALCIUM [Concomitant]
     Active Substance: CALCIUM
  8. CELLCEPT [Concomitant]
     Active Substance: MYCOPHENOLATE MOFETIL
  9. COZAAR [Concomitant]
     Active Substance: LOSARTAN POTASSIUM
  10. CREON [Concomitant]
     Active Substance: PANCRELIPASE AMYLASE\PANCRELIPASE LIPASE\PANCRELIPASE PROTEASE
  11. FERROUS SULFATE [Concomitant]
     Active Substance: FERROUS SULFATE
  12. FLUTICASONE [Concomitant]
     Active Substance: FLUTICASONE
  13. FOLIC ACID [Concomitant]
     Active Substance: FOLIC ACID
  14. FOSAMAX [Concomitant]
     Active Substance: ALENDRONATE SODIUM
  15. GARLIC [Concomitant]
     Active Substance: GARLIC
  16. HUMALOG [Concomitant]
     Active Substance: INSULIN LISPRO
  17. HYDRALAZINE [Concomitant]
     Active Substance: HYDRALAZINE HYDROCHLORIDE
  18. IPRATROPIUM [Concomitant]
     Active Substance: IPRATROPIUM
  19. LANSOPRAZOLE [Concomitant]
     Active Substance: LANSOPRAZOLE
  20. LEVAQUIN [Concomitant]
     Active Substance: LEVOFLOXACIN
  21. LOSARTAN [Concomitant]
     Active Substance: LOSARTAN
  22. MONTELUKAST [Concomitant]
     Active Substance: MONTELUKAST SODIUM
  23. NASAL [SODIUM CHLORIDE] [Concomitant]
  24. NEO SYNEPHRIN [Concomitant]
  25. NOXAFIL [Concomitant]
     Active Substance: POSACONAZOLE
  26. PENICILLIN V [Concomitant]
     Active Substance: PENICILLIN V
  27. POSACONAZOLE [Concomitant]
     Active Substance: POSACONAZOLE
  28. PREDNISONE [Concomitant]
     Active Substance: PREDNISONE
  29. PROGRAF [Concomitant]
     Active Substance: TACROLIMUS
  30. PULMOZYME [Concomitant]
     Active Substance: DORNASE ALFA
  31. RANITIDINE [Concomitant]
     Active Substance: RANITIDINE
  32. RASPBERRY [RUBUS IDAEUS] [Concomitant]
  33. RIBAVIRIN [Concomitant]
     Active Substance: RIBAVIRIN
  34. ROPINIROLE [Concomitant]
     Active Substance: ROPINIROLE
  35. SULFAMETHOXAZOLE\TRIMETHOPRIM [Concomitant]
     Active Substance: SULFAMETHOXAZOLE\TRIMETHOPRIM
  36. SODIUM BICARBONATE [Concomitant]
     Active Substance: SODIUM BICARBONATE
  37. TOBRAMYCIN [Concomitant]
     Active Substance: TOBRAMYCIN
  38. URSODIOL [Concomitant]
     Active Substance: URSODIOL
  39. VALACYCLOVIR [Concomitant]
     Active Substance: VALACYCLOVIR HYDROCHLORIDE

REACTIONS (1)
  - Respiratory syncytial virus infection [Unknown]
